FAERS Safety Report 6724727-1 (Version None)
Quarter: 2010Q2

REPORT INFORMATION
  Report Type: 
  Country: None (occurrence: None)
  Receive Date: 20100513
  Receipt Date: 20100428
  Transmission Date: 20101027
  Serious: Yes (Other)
  Sender: FDA-Public Use
  Company Number: DE-GENENTECH-297046

PATIENT
  Sex: Female

DRUGS (3)
  1. RANIBIZUMAB [Suspect]
     Indication: MACULAR DEGENERATION
     Dosage: UNK
     Route: 065
     Dates: start: 20080625
  2. RANIBIZUMAB [Suspect]
     Dosage: UNK
     Dates: start: 20100301
  3. VIDISIC [Concomitant]
     Indication: DRUG USE FOR UNKNOWN INDICATION
     Dosage: UNK
     Dates: start: 20090406

REACTIONS (3)
  - EYE HAEMORRHAGE [None]
  - EYE IRRITATION [None]
  - VISUAL ACUITY REDUCED [None]
